FAERS Safety Report 23638076 (Version 1)
Quarter: 2024Q1

REPORT INFORMATION
  Report Type: Spontaneous
  Country: BR (occurrence: None)
  Receive Date: 20240315
  Receipt Date: 20240315
  Transmission Date: 20240410
  Serious: Yes (Life-Threatening, Hospitalization, Other)
  Sender: FDA-Public Use
  Company Number: 2024A063833

PATIENT
  Age: 65 Year
  Sex: Female

DRUGS (1)
  1. XIGDUO XR [Suspect]
     Active Substance: DAPAGLIFLOZIN PROPANEDIOL\METFORMIN HYDROCHLORIDE
     Indication: Blood glucose
     Dosage: 10/1000MG ONCE A DAY IN THE MORNING
     Route: 048
     Dates: start: 20240305, end: 20240308

REACTIONS (7)
  - Abdominal pain [Recovering/Resolving]
  - Abdominal wall wound [Recovering/Resolving]
  - Fluid intake reduced [Unknown]
  - Hypophagia [Unknown]
  - Vomiting [Recovering/Resolving]
  - Malaise [Not Recovered/Not Resolved]
  - Off label use [Unknown]

NARRATIVE: CASE EVENT DATE: 20240306
